FAERS Safety Report 5066982-2 (Version None)
Quarter: 2006Q3

REPORT INFORMATION
  Report Type: 
  Country: None (occurrence: None)
  Receive Date: 20060726
  Receipt Date: 20060711
  Transmission Date: 20061208
  Serious: Yes (Hospitalization)
  Sender: FDA-Public Use
  Company Number: A-US2006-12545

PATIENT
  Age: 43 Year
  Sex: Female

DRUGS (18)
  1. TRACLEER [Suspect]
     Indication: PULMONARY HYPERTENSION
     Dosage: 125 + 62.6  MG, BID, ORAL - SEE IMAGE
     Route: 048
     Dates: start: 20060401, end: 20060501
  2. TRACLEER [Suspect]
     Indication: PULMONARY HYPERTENSION
     Dosage: 125 + 62.6  MG, BID, ORAL - SEE IMAGE
     Route: 048
     Dates: start: 20060501
  3. BUMEX [Concomitant]
  4. LANOXIN [Concomitant]
  5. COUMADIN [Concomitant]
  6. POTASSIUM (POTASSIUM) [Concomitant]
  7. PROTONIX [Concomitant]
  8. CELEXA [Concomitant]
  9. QUINIDINE (QUINIDINE) [Concomitant]
  10. XANAX [Concomitant]
  11. CALCIUM (CALCIUM) [Concomitant]
  12. QUESTRAN [Concomitant]
  13. MULTIVITAMINS (PANTHENOL, THIAMINE HYDROCHLORIDE, RIBOFLAVIN, RETINOL, [Concomitant]
  14. ZAROXOLYN [Concomitant]
  15. BENADRYL [Concomitant]
  16. PREDNISONE TAB [Concomitant]
  17. OXYGEN (OXYGEN) [Concomitant]
  18. LEVAQUIN [Concomitant]

REACTIONS (13)
  - BLOOD CHLORIDE DECREASED [None]
  - CHEST PAIN [None]
  - DEHYDRATION [None]
  - DIARRHOEA [None]
  - HYPOKALAEMIA [None]
  - HYPONATRAEMIA [None]
  - HYPOTENSION [None]
  - NAUSEA [None]
  - PNEUMONIA [None]
  - RETCHING [None]
  - SYNCOPE [None]
  - VIRAL INFECTION [None]
  - VOMITING [None]
